FAERS Safety Report 6734459-1 (Version None)
Quarter: 2010Q2

REPORT INFORMATION
  Report Type: 
  Country: None (occurrence: None)
  Receive Date: 20100520
  Receipt Date: 20100510
  Transmission Date: 20101027
  Serious: Yes (Hospitalization)
  Sender: FDA-Public Use
  Company Number: IT-BAXTER-2010BH006636

PATIENT
  Age: 62 Year
  Sex: Female

DRUGS (6)
  1. ENDOXAN BAXTER [Suspect]
     Indication: NON-HODGKIN'S LYMPHOMA
     Route: 042
     Dates: start: 20100105, end: 20100127
  2. VINCRISTINE SULFATE [Suspect]
     Indication: NON-HODGKIN'S LYMPHOMA
     Route: 042
     Dates: start: 20100105, end: 20100127
  3. DELTACORTENE [Suspect]
     Indication: NON-HODGKIN'S LYMPHOMA
     Route: 048
  4. MABTHERA [Suspect]
     Indication: DRUG USE FOR UNKNOWN INDICATION
     Route: 042
  5. BACTRIM [Concomitant]
     Indication: DRUG USE FOR UNKNOWN INDICATION
     Route: 048
  6. TRIATEC [Concomitant]
     Indication: DRUG USE FOR UNKNOWN INDICATION
     Route: 048

REACTIONS (1)
  - REVERSIBLE POSTERIOR LEUKOENCEPHALOPATHY SYNDROME [None]
